FAERS Safety Report 5193735-7 (Version None)
Quarter: 2006Q4

REPORT INFORMATION
  Report Type: 
  Country: None (occurrence: None)
  Receive Date: 20061228
  Receipt Date: 20061227
  Transmission Date: 20070319
  Serious: Yes (Other)
  Sender: FDA-Public Use
  Company Number: US-GLAXOSMITHKLINE-A0632601A

PATIENT
  Age: 74 Year
  Sex: Male

DRUGS (2)
  1. ADVAIR DISKUS 100/50 [Suspect]
     Indication: COUGH
     Dosage: 1PUFF TWICE PER DAY
     Route: 055
     Dates: start: 20050801, end: 20060901
  2. MULTIPLE MEDICATIONS [Concomitant]

REACTIONS (4)
  - BLOOD TEST ABNORMAL [None]
  - OESOPHAGEAL INFECTION [None]
  - PROSTATE CANCER [None]
  - WEIGHT DECREASED [None]
